FAERS Safety Report 13513903 (Version 2)
Quarter: 2017Q2

REPORT INFORMATION
  Report Type: Spontaneous
  Country: JP (occurrence: JP)
  Receive Date: 20170504
  Receipt Date: 20170523
  Transmission Date: 20170830
  Serious: Yes (Death, Hospitalization, Other)
  Sender: FDA-Public Use
  Company Number: JP-009507513-1703JPN001192J

PATIENT
  Age: 82 Year
  Sex: Male
  Weight: 50 kg

DRUGS (13)
  1. ZOSYN [Suspect]
     Active Substance: PIPERACILLIN SODIUM\TAZOBACTAM SODIUM
     Indication: SEPSIS
     Dosage: 2.25G/DOSE X4
     Route: 042
     Dates: start: 20170202, end: 20170207
  2. CUBICIN [Suspect]
     Active Substance: DAPTOMYCIN
     Indication: DEVICE RELATED INFECTION
  3. ARTIST [Concomitant]
     Active Substance: CARVEDILOL
     Indication: CARDIAC FAILURE CHRONIC
     Dosage: 10 MG, BID
     Route: 048
     Dates: start: 20140416, end: 20170221
  4. MEDROL [Suspect]
     Active Substance: METHYLPREDNISOLONE
     Indication: MIXED CONNECTIVE TISSUE DISEASE
     Dosage: 4 MG, BID
     Route: 048
     Dates: start: 20170204, end: 20170208
  5. PRECEDEX [Suspect]
     Active Substance: DEXMEDETOMIDINE HYDROCHLORIDE
     Indication: SEDATION
     Dosage: 0.49/?G/DOSE/KG/MIN, CONTINUOUS ADMINISTRATION
     Route: 042
     Dates: start: 20170204, end: 20170211
  6. NEXIUM [Suspect]
     Active Substance: ESOMEPRAZOLE MAGNESIUM
     Indication: PROPHYLAXIS AGAINST GASTROINTESTINAL ULCER
     Dosage: 20 MG, QD
     Route: 048
     Dates: start: 20170202, end: 20170205
  7. DOBUPUM [Concomitant]
     Active Substance: DOBUTAMINE HYDROCHLORIDE
     Indication: CARDIAC FAILURE CONGESTIVE
     Dosage: 2?G/DOSE/KG/MIN, CONTINUOUS ADMINISTRATION
     Route: 042
     Dates: start: 20170202, end: 20170218
  8. CRESTOR [Suspect]
     Active Substance: ROSUVASTATIN CALCIUM
     Indication: HYPERLIPIDAEMIA
     Dosage: 2.5 MG, QD
     Route: 048
     Dates: start: 20161231, end: 20170204
  9. HANP [Concomitant]
     Active Substance: CARPERITIDE
     Indication: CARDIAC FAILURE CONGESTIVE
     Dosage: 0.33 ?G/DOSE/KG/MIN, 0.18 CONTINUOUS ADMINISTRATION
     Route: 042
     Dates: start: 20170204, end: 20170210
  10. HEPARIN SODIUM. [Concomitant]
     Active Substance: HEPARIN SODIUM
     Indication: ANTICOAGULANT THERAPY
     Dosage: 2400 IU, 100 UNIT/HR
     Route: 042
     Dates: start: 20170204, end: 20170209
  11. LASIX [Concomitant]
     Active Substance: FUROSEMIDE
     Indication: CARDIAC FAILURE CONGESTIVE
     Dosage: 20 MG, BID
     Route: 042
     Dates: start: 20170202, end: 20170209
  12. CUBICIN [Suspect]
     Active Substance: DAPTOMYCIN
     Indication: STAPHYLOCOCCAL INFECTION
     Dosage: 6 MG/KG, UNK
     Route: 041
     Dates: start: 20170204, end: 20170205
  13. WARFARIN [Concomitant]
     Active Substance: WARFARIN
     Indication: ANTICOAGULANT THERAPY
     Dosage: 25 MG, UNK
     Route: 048
     Dates: start: 20160330, end: 20170218

REACTIONS (3)
  - Cardiac failure acute [Fatal]
  - Rhabdomyolysis [Recovering/Resolving]
  - Renal impairment [Unknown]

NARRATIVE: CASE EVENT DATE: 20170204
